FAERS Safety Report 10489190 (Version 1)
Quarter: 2014Q4

REPORT INFORMATION
  Report Type: Spontaneous
  Country: US (occurrence: US)
  Receive Date: 20141002
  Receipt Date: 20141002
  Transmission Date: 20150528
  Serious: No
  Sender: FDA-Public Use
  Company Number: US-PFIZER INC-2014270293

PATIENT
  Age: 48 Year
  Sex: Female
  Weight: 77 kg

DRUGS (3)
  1. PREMARIN [Suspect]
     Active Substance: ESTROGENS, CONJUGATED
     Indication: VULVOVAGINAL DRYNESS
     Dosage: 0.5 MG, ALTERNATE DAY, (EVERY OTHER DAY )
     Route: 067
     Dates: start: 20140829
  2. LEVOTHYROXINE [Concomitant]
     Active Substance: LEVOTHYROXINE
     Indication: HYPOTHYROIDISM
     Dosage: 0.175 UG, 1X/DAY
  3. PREMARIN [Suspect]
     Active Substance: ESTROGENS, CONJUGATED
     Dosage: 1 MG, ALTERNATE DAY, (EVERY OTHER DAY)
     Route: 067
     Dates: start: 201409

REACTIONS (1)
  - Rash macular [Not Recovered/Not Resolved]

NARRATIVE: CASE EVENT DATE: 201409
